FAERS Safety Report 18973393 (Version 1)
Quarter: 2021Q1

REPORT INFORMATION
  Report Type: Spontaneous
  Country: US (occurrence: US)
  Receive Date: 20210305
  Receipt Date: 20210305
  Transmission Date: 20210420
  Serious: Yes (Death)
  Sender: FDA-Public Use
  Company Number: None

PATIENT
  Age: 68 Year
  Sex: Male
  Weight: 111.3 kg

DRUGS (4)
  1. TACROLIMUS 1MG [Concomitant]
     Active Substance: TACROLIMUS
     Dates: start: 20110326, end: 20210202
  2. MYCOPHENOLATE [Suspect]
     Active Substance: MYCOPHENOLIC ACID
     Indication: DRUG THERAPY
     Route: 048
     Dates: start: 20110326, end: 20200317
  3. MYCOPHENOLATE 250 MG [Concomitant]
     Active Substance: MYCOPHENOLIC ACID
     Dates: start: 20110326, end: 20200317
  4. TACROLIMUS. [Suspect]
     Active Substance: TACROLIMUS
     Indication: PROPHYLAXIS AGAINST TRANSPLANT REJECTION
     Route: 060
     Dates: start: 20110326, end: 20210202

REACTIONS (1)
  - Pancreatic carcinoma [None]

NARRATIVE: CASE EVENT DATE: 20210202
